FAERS Safety Report 25671928 (Version 2)
Quarter: 2025Q3

REPORT INFORMATION
  Report Type: Spontaneous
  Country: BR (occurrence: BR)
  Receive Date: 20250812
  Receipt Date: 20250908
  Transmission Date: 20251021
  Serious: No
  Sender: NOVO NORDISK
  Company Number: BR-NOVOPROD-1494552

PATIENT
  Sex: Female

DRUGS (1)
  1. WEGOVY [Suspect]
     Active Substance: SEMAGLUTIDE
     Indication: Product used for unknown indication

REACTIONS (1)
  - Product storage error [Unknown]
